FAERS Safety Report 6628723-4 (Version None)
Quarter: 2010Q1

REPORT INFORMATION
  Report Type: 
  Country: None (occurrence: None)
  Receive Date: 20100311
  Receipt Date: 20100302
  Transmission Date: 20100710
  Serious: Yes (Hospitalization)
  Sender: FDA-Public Use
  Company Number: US-WYE-H13901610

PATIENT
  Age: 5 Year
  Sex: Male

DRUGS (2)
  1. IBUPROFEN [Suspect]
     Indication: PYREXIA
     Dosage: UNKNOWN
     Route: 048
     Dates: start: 20011201, end: 20011201
  2. PARACETAMOL [Suspect]
     Indication: PYREXIA
     Dosage: 500 MG 2 IN 1 DAY
     Route: 048
     Dates: start: 20011216, end: 20011201

REACTIONS (3)
  - HEPATIC ENZYME INCREASED [None]
  - PNEUMONIA [None]
  - PROTHROMBIN TIME PROLONGED [None]
